FAERS Safety Report 5018423-9 (Version None)
Quarter: 2006Q2

REPORT INFORMATION
  Report Type: 
  Country: None (occurrence: None)
  Receive Date: 20060530
  Receipt Date: 20050527
  Transmission Date: 20061013
  Serious: Yes (Death)
  Sender: FDA-Public Use
  Company Number: 2005080773

PATIENT
  Age: 77 Year
  Sex: Female
  Weight: 50 kg

DRUGS (5)
  1. LYRICA [Suspect]
     Indication: NEUROPATHY
     Dosage: 150 MG (75 MG, 2 IN 1 D), ORAL
     Route: 048
     Dates: start: 20050504, end: 20050510
  2. LEVOTHYROXINE SODIUM [Concomitant]
  3. IMIPRAMINE [Concomitant]
  4. HALOPERIDOL [Concomitant]
  5. DURAGESIC-100 [Concomitant]

REACTIONS (1)
  - DEATH [None]
